FAERS Safety Report 15125767 (Version 2)
Quarter: 2025Q1

REPORT INFORMATION
  Report Type: Spontaneous
  Country: NZ (occurrence: NZ)
  Receive Date: 20180710
  Receipt Date: 20250127
  Transmission Date: 20250408
  Serious: Yes (Other)
  Sender: PFIZER
  Company Number: NZ-PFIZER INC-2018272627

PATIENT

DRUGS (2)
  1. PROSTIN E2 [Suspect]
     Active Substance: DINOPROSTONE
     Indication: Induced labour
     Route: 064
     Dates: start: 20180518
  2. PROSTIN E2 [Suspect]
     Active Substance: DINOPROSTONE
     Route: 064
     Dates: start: 20180519

REACTIONS (2)
  - Foetal exposure during delivery [Unknown]
  - Bradycardia foetal [Unknown]

NARRATIVE: CASE EVENT DATE: 20180518
